FAERS Safety Report 19199343 (Version 1)
Quarter: 2021Q2

REPORT INFORMATION
  Report Type: Spontaneous
  Country: US (occurrence: US)
  Receive Date: 20210429
  Receipt Date: 20210429
  Transmission Date: 20210717
  Serious: Yes (Other)
  Sender: FDA-Public Use
  Company Number: None

PATIENT
  Age: 5 Year
  Sex: Female
  Weight: 20.25 kg

DRUGS (1)
  1. MIRALAX [Suspect]
     Active Substance: POLYETHYLENE GLYCOL 3350
     Indication: CONSTIPATION

REACTIONS (5)
  - Insomnia [None]
  - Hallucination [None]
  - Morbid thoughts [None]
  - Anxiety [None]
  - Obsessive-compulsive disorder [None]

NARRATIVE: CASE EVENT DATE: 20200820
